FAERS Safety Report 5571211-7 (Version None)
Quarter: 2007Q4

REPORT INFORMATION
  Report Type: 
  Country: None (occurrence: None)
  Receive Date: 20071221
  Receipt Date: 20070216
  Transmission Date: 20080405
  Serious: No
  Sender: FDA-Public Use
  Company Number: A0639391A

PATIENT
  Sex: Female

DRUGS (1)
  1. FLONASE [Suspect]
     Route: 045
     Dates: start: 20061201, end: 20070101

REACTIONS (6)
  - ADVERSE DRUG REACTION [None]
  - ARRHYTHMIA [None]
  - ASTHENIA [None]
  - FATIGUE [None]
  - HEART RATE INCREASED [None]
  - MOOD SWINGS [None]
